FAERS Safety Report 4404248-1 (Version None)
Quarter: 2004Q3

REPORT INFORMATION
  Report Type: 
  Country: None (occurrence: None)
  Receive Date: 20040721
  Receipt Date: 20040721
  Transmission Date: 20050211
  Serious: Yes (Life-Threatening, Hospitalization)
  Sender: FDA-Public Use
  Company Number: None

PATIENT
  Age: 66 Year
  Sex: Male
  Weight: 83.5 kg

DRUGS (1)
  1. LEVOFLOXACIN [Suspect]

REACTIONS (1)
  - ANAPHYLACTIC REACTION [None]
